FAERS Safety Report 25347404 (Version 1)
Quarter: 2025Q2

REPORT INFORMATION
  Report Type: Spontaneous
  Country: FR (occurrence: FR)
  Receive Date: 20250522
  Receipt Date: 20250522
  Transmission Date: 20250717
  Serious: Yes (Other)
  Sender: FRESENIUS KABI
  Company Number: None

PATIENT
  Age: 42 Year
  Sex: Male
  Weight: 110 kg

DRUGS (4)
  1. PROPOFOL [Suspect]
     Active Substance: PROPOFOL
     Indication: Sedation
     Route: 042
     Dates: start: 20250420, end: 20250429
  2. CEFTRIAXONE [Suspect]
     Active Substance: CEFTRIAXONE
     Indication: Lung disorder
     Route: 042
     Dates: start: 20250424, end: 20250428
  3. TERBUTALINE [Suspect]
     Active Substance: TERBUTALINE
     Indication: Product used for unknown indication
     Route: 055
     Dates: start: 20250425, end: 20250429
  4. MIDAZOLAM HYDROCHLORIDE [Suspect]
     Active Substance: MIDAZOLAM HYDROCHLORIDE
     Indication: Sedation
     Route: 042
     Dates: start: 20250420, end: 20250428

REACTIONS (1)
  - Cholestasis [Recovering/Resolving]

NARRATIVE: CASE EVENT DATE: 20250426
